FAERS Safety Report 4694153-8 (Version None)
Quarter: 2005Q2

REPORT INFORMATION
  Report Type: 
  Country: None (occurrence: None)
  Receive Date: 20050616
  Receipt Date: 20050616
  Transmission Date: 20051028
  Serious: Yes (Hospitalization, Other)
  Sender: FDA-Public Use
  Company Number: None

PATIENT
  Age: 18 Year
  Sex: Male

DRUGS (4)
  1. CORICIDIN [Suspect]
     Indication: INTENTIONAL MISUSE
     Dosage: ORAL
     Route: 048
     Dates: start: 20050125, end: 20050125
  2. DRAMAMINE [Suspect]
     Indication: INTENTIONAL MISUSE
     Dosage: 15 TABLETS
     Dates: start: 20041001, end: 20050201
  3. SEROQUEL [Concomitant]
  4. CELEXA [Concomitant]

REACTIONS (4)
  - DEPRESSION [None]
  - HEPATIC ENZYME INCREASED [None]
  - INTENTIONAL MISUSE [None]
  - PSYCHOTIC DISORDER [None]
